FAERS Safety Report 8269350-5 (Version None)
Quarter: 2012Q2

REPORT INFORMATION
  Report Type: 
  Country: None (occurrence: None)
  Receive Date: 20120409
  Receipt Date: 20120329
  Transmission Date: 20120825
  Serious: Yes (Other)
  Sender: FDA-Public Use
  Company Number: JP-CELGENEUS-087-50794-12032058

PATIENT
  Sex: Female
  Weight: 39 kg

DRUGS (29)
  1. NEOMALLERMIN TR [Concomitant]
     Route: 065
     Dates: start: 20110330
  2. KENALOG [Concomitant]
     Route: 065
     Dates: start: 20110418
  3. LOXONIN [Concomitant]
     Route: 065
     Dates: start: 20110405
  4. ALFAROL [Concomitant]
     Route: 065
     Dates: start: 20110426
  5. DAIPHEN [Concomitant]
     Route: 065
     Dates: start: 20110422
  6. VIDAZA [Suspect]
     Dosage: 75 MILLIGRAM/SQ. METER
     Route: 058
     Dates: start: 20110324, end: 20110325
  7. NAVOBAN [Concomitant]
     Route: 065
     Dates: start: 20110511
  8. MEFENAMIC ACID [Concomitant]
     Route: 065
     Dates: start: 20110408
  9. GLAKAY [Concomitant]
     Route: 065
     Dates: start: 20110426
  10. LOCOID [Concomitant]
     Route: 065
     Dates: start: 20110418
  11. SCOPOLAMINE [Concomitant]
     Route: 065
     Dates: start: 20110517
  12. MEDICON [Concomitant]
     Route: 065
     Dates: start: 20110616
  13. VIDAZA [Suspect]
     Dosage: 75 MILLIGRAM/SQ. METER
     Route: 041
     Dates: start: 20110511, end: 20110517
  14. MAGMITT [Concomitant]
     Route: 065
     Dates: start: 20110518
  15. CANDESARTAN CILEXETIL [Concomitant]
     Route: 065
     Dates: start: 20110418
  16. SOLDANA [Concomitant]
     Route: 065
     Dates: start: 20110516
  17. AZUNOL OINTMENT [Concomitant]
     Route: 065
     Dates: start: 20110613
  18. LASIX [Concomitant]
     Route: 065
     Dates: start: 20110331
  19. ASPARA POTASSIUM [Concomitant]
     Route: 065
     Dates: start: 20110530
  20. NIFPLUS [Concomitant]
     Route: 065
     Dates: start: 20110526
  21. NAVOBAN [Concomitant]
     Route: 065
     Dates: start: 20110324
  22. ACETAMINOPHEN [Concomitant]
     Route: 065
     Dates: start: 20110330
  23. FULMETA [Concomitant]
     Route: 065
     Dates: start: 20110325
  24. DIGOXIN [Concomitant]
     Route: 065
     Dates: start: 20110418
  25. LENDORMIN [Concomitant]
     Route: 065
     Dates: start: 20110521
  26. VIDAZA [Suspect]
     Dosage: 75 MILLIGRAM/SQ. METER
     Route: 041
     Dates: start: 20110404, end: 20110407
  27. SHINLUCK [Concomitant]
     Route: 065
     Dates: start: 20110326
  28. ROXATI [Concomitant]
     Route: 065
     Dates: start: 20110418
  29. ETODOLAC [Concomitant]
     Route: 065
     Dates: start: 20110611

REACTIONS (1)
  - COLITIS ISCHAEMIC [None]
